FAERS Safety Report 14177083 (Version 11)
Quarter: 2020Q3

REPORT INFORMATION
  Report Type: Spontaneous
  Country: US (occurrence: US)
  Receive Date: 20171110
  Receipt Date: 20200819
  Transmission Date: 20201102
  Serious: No
  Sender: FDA-Public Use
  Company Number: US-PFIZER INC-2017482199

PATIENT
  Age: 59 Year
  Sex: Female
  Weight: 114 kg

DRUGS (9)
  1. XANAX [Concomitant]
     Active Substance: ALPRAZOLAM
     Dosage: 0.25 MG, AS NEEDED
     Route: 048
  2. LYRICA [Suspect]
     Active Substance: PREGABALIN
     Indication: ARTHRITIS
     Dosage: 50 MG, 2X/DAY
     Route: 048
  3. LYRICA [Suspect]
     Active Substance: PREGABALIN
     Indication: PAIN
     Dosage: 100 MG, 2X/DAY
     Route: 048
  4. LOSARTAN. [Concomitant]
     Active Substance: LOSARTAN
     Dosage: 100 MG, 1X/DAY
     Route: 048
  5. LYRICA [Suspect]
     Active Substance: PREGABALIN
     Indication: FIBROMYALGIA
     Dosage: 75 MG, 2X/DAY
     Dates: start: 2015
  6. VITAMIN D3 [Concomitant]
     Active Substance: CHOLECALCIFEROL
     Dosage: 2000 IU, 1X/DAY
     Route: 048
  7. CITALOPRAM [Concomitant]
     Active Substance: CITALOPRAM HYDROBROMIDE
     Dosage: 20 MG, 1X/DAY
     Route: 048
  8. FISH OIL [Concomitant]
     Active Substance: FISH OIL
     Dosage: 1 DF, 1X/DAY
     Route: 048
  9. TRAMADOL. [Concomitant]
     Active Substance: TRAMADOL
     Dosage: 50 MG, AS NEEDED (TWICE DAILY)
     Route: 048

REACTIONS (5)
  - Drug ineffective [Unknown]
  - Neck pain [Unknown]
  - Dry mouth [Unknown]
  - Headache [Unknown]
  - Insomnia [Unknown]

NARRATIVE: CASE EVENT DATE: 2015
